FAERS Safety Report 13784123 (Version 2)
Quarter: 2017Q3

REPORT INFORMATION
  Report Type: Report from Study
  Country: US (occurrence: US)
  Receive Date: 20170724
  Receipt Date: 20170905
  Transmission Date: 20171127
  Serious: Yes (Hospitalization)
  Sender: FDA-Public Use
  Company Number: US-ACTELION-A-US2017-156896

PATIENT
  Age: 42 Year
  Sex: Male

DRUGS (18)
  1. HYDRALAZINE [Concomitant]
     Active Substance: HYDRALAZINE HYDROCHLORIDE
     Dosage: 100 MG, BID
     Dates: start: 20170621
  2. FUROSEMIDE. [Concomitant]
     Active Substance: FUROSEMIDE
     Dosage: 80 MG, BID
     Dates: start: 20170621
  3. OPSUMIT [Suspect]
     Active Substance: MACITENTAN
     Indication: PULMONARY ARTERIAL HYPERTENSION
     Dosage: 10 MG, QD
     Route: 048
     Dates: start: 20170614
  4. SPIRONOLACTONE. [Concomitant]
     Active Substance: SPIRONOLACTONE
     Dosage: 25 MG, QD
     Dates: start: 20170621
  5. HUMALOG [Concomitant]
     Active Substance: INSULIN LISPRO
     Dosage: 12 U, UNK
     Dates: start: 20170612
  6. AUGMENTIN [Concomitant]
     Active Substance: AMOXICILLIN\CLAVULANATE POTASSIUM
  7. ASPIRIN. [Concomitant]
     Active Substance: ASPIRIN
     Dosage: 81 MG, QD
     Dates: start: 20170621
  8. MINOXIDIL. [Concomitant]
     Active Substance: MINOXIDIL
     Dosage: 2.5 MG, QD
     Dates: start: 20170428
  9. METOLAZONE. [Concomitant]
     Active Substance: METOLAZONE
  10. LINZESS [Concomitant]
     Active Substance: LINACLOTIDE
  11. LEVEMIR [Concomitant]
     Active Substance: INSULIN DETEMIR
     Dosage: 25 MG, UNK
     Dates: start: 20170611
  12. ELIQUIS [Concomitant]
     Active Substance: APIXABAN
  13. BACLOFEN. [Concomitant]
     Active Substance: BACLOFEN
     Dosage: 10 MG, TID
     Dates: start: 20170602
  14. ISOSORBIDE. [Concomitant]
     Active Substance: ISOSORBIDE
  15. GABAPENTIN. [Concomitant]
     Active Substance: GABAPENTIN
  16. LIDOCAINE. [Concomitant]
     Active Substance: LIDOCAINE
     Indication: PAIN
     Dosage: UNK, TID
     Dates: start: 20170401
  17. AMOXICILLIN. [Concomitant]
     Active Substance: AMOXICILLIN
     Dosage: 125 MG, QD
     Route: 048
     Dates: start: 20170612
  18. AMLODIPINE [Concomitant]
     Active Substance: AMLODIPINE BESYLATE

REACTIONS (1)
  - Hyperoxia [Not Recovered/Not Resolved]

NARRATIVE: CASE EVENT DATE: 20170710
